FAERS Safety Report 9334909 (Version 1)
Quarter: 2013Q2

REPORT INFORMATION
  Report Type: Spontaneous
  Country: FR (occurrence: FR)
  Receive Date: 20130606
  Receipt Date: 20130606
  Transmission Date: 20140414
  Serious: Yes (Other)
  Sender: FDA-Public Use
  Company Number: FR-BAYER-2013-068800

PATIENT
  Sex: 0

DRUGS (1)
  1. IZILOX [Suspect]

REACTIONS (1)
  - Tourette^s disorder [None]
